FAERS Safety Report 6641153-4 (Version None)
Quarter: 2010Q1

REPORT INFORMATION
  Report Type: 
  Country: None (occurrence: None)
  Receive Date: 20100318
  Receipt Date: 20100317
  Transmission Date: 20100710
  Serious: Yes (Other)
  Sender: FDA-Public Use
  Company Number: DE-WYE-G05659610

PATIENT
  Age: 79 Year
  Sex: Male
  Weight: 85 kg

DRUGS (13)
  1. TYGACIL [Suspect]
     Indication: PNEUMONIA
     Route: 042
     Dates: start: 20100122, end: 20100122
  2. TYGACIL [Suspect]
     Route: 042
     Dates: start: 20100123, end: 20100129
  3. ACETYLSALICYLIC ACID SRT [Concomitant]
  4. FUROSEMIDE [Concomitant]
  5. HYDROCHLOROTHIAZIDE [Concomitant]
  6. FORTUM [Concomitant]
     Route: 042
     Dates: start: 20100122, end: 20100129
  7. OMEPRAZOLE [Concomitant]
  8. ALLOPURINOL [Concomitant]
  9. ACTRAPID MC [Concomitant]
  10. ACETYLCYSTEINE [Concomitant]
  11. PIPERACILLIN AND TAZOBACTAM [Concomitant]
     Route: 042
     Dates: start: 20100120, end: 20100122
  12. CLEXANE [Concomitant]
  13. MACROGOL/POTASSIUM CHLORIDE/SODIUM BICARBONATE/SODIUM CHLORIDE [Concomitant]

REACTIONS (2)
  - DRUG INEFFECTIVE [None]
  - PSEUDOMONAS INFECTION [None]
